FAERS Safety Report 14308613 (Version 1)
Quarter: 2017Q4

REPORT INFORMATION
  Report Type: Spontaneous
  Country: US (occurrence: US)
  Receive Date: 20171220
  Receipt Date: 20171220
  Transmission Date: 20180321
  Serious: No
  Sender: FDA-Public Use
  Company Number: None

PATIENT
  Sex: Male

DRUGS (2)
  1. SUTENT [Suspect]
     Active Substance: SUNITINIB MALATE
     Indication: METASTASES TO KIDNEY
     Dosage: 37.5MG ONCE DAILY FOR 2 WEEKS ON AND 1 WEEK BY MOUTH
     Route: 048
     Dates: start: 20170501
  2. SUTENT [Suspect]
     Active Substance: SUNITINIB MALATE
     Indication: METASTASES TO LUNG
     Dosage: 37.5MG ONCE DAILY FOR 2 WEEKS ON AND 1 WEEK BY MOUTH
     Route: 048
     Dates: start: 20170501

REACTIONS (1)
  - Ageusia [None]
